FAERS Safety Report 6503854-8 (Version None)
Quarter: 2009Q4

REPORT INFORMATION
  Report Type: 
  Country: None (occurrence: None)
  Receive Date: 20091217
  Receipt Date: 20091209
  Transmission Date: 20100525
  Serious: Yes (Hospitalization)
  Sender: FDA-Public Use
  Company Number: B0591533A

PATIENT
  Sex: Female

DRUGS (1)
  1. VALTREX [Suspect]
     Indication: HERPES SIMPLEX
     Dosage: 1G TWICE PER DAY
     Route: 048
     Dates: start: 20090829, end: 20090829

REACTIONS (7)
  - ANAPHYLACTIC REACTION [None]
  - COUGH [None]
  - DYSPNOEA [None]
  - EYELID OEDEMA [None]
  - GENERALISED OEDEMA [None]
  - PRURITUS GENERALISED [None]
  - RASH [None]
